FAERS Safety Report 8071942-3 (Version None)
Quarter: 2012Q1

REPORT INFORMATION
  Report Type: 
  Country: None (occurrence: None)
  Receive Date: 20120124
  Receipt Date: 20120124
  Transmission Date: 20120608
  Serious: Yes (Other)
  Sender: FDA-Public Use
  Company Number: None

PATIENT
  Age: 52 Year
  Sex: Male
  Weight: 81.1939 kg

DRUGS (5)
  1. VITAMIN B6 [Suspect]
  2. RIFAMPIN [Suspect]
     Indication: PULMONARY TUBERCULOSIS
     Dosage: 2 TABS - 600MG DAILY BY MOUTH
     Route: 048
  3. ETHAMBUTOL HYDROCHLORIDE [Suspect]
     Indication: PULMONARY TUBERCULOSIS
     Dosage: 4 TABLETS DAILY BY MOUTH
     Route: 048
  4. PYRAZINAMIDE 500MG VERSAPHARM -OBTAINED FROM DSHS-AUSTIN [Suspect]
     Indication: PULMONARY TUBERCULOSIS
     Dosage: 4 TABLETS DAILY BY MOUTH
     Route: 048
  5. ISONIAZID [Suspect]
     Indication: PULMONARY TUBERCULOSIS
     Dosage: 300MG - ONE TAB DAILY BY MOUTH
     Route: 048

REACTIONS (3)
  - URTICARIA [None]
  - OEDEMA PERIPHERAL [None]
  - LIP SWELLING [None]
